FAERS Safety Report 7468394-0 (Version None)
Quarter: 2011Q2

REPORT INFORMATION
  Report Type: 
  Country: None (occurrence: None)
  Receive Date: 20110509
  Receipt Date: 20110505
  Transmission Date: 20111010
  Serious: Yes (Hospitalization)
  Sender: FDA-Public Use
  Company Number: US-B.I. PHARMACEUTICALS,INC./RIDGEFIELD-2011-BP-09679BP

PATIENT
  Age: 80 Year
  Sex: Female
  Weight: 68.03 kg

DRUGS (7)
  1. COD LIVER OIL [Concomitant]
  2. BYSTOLIC [Concomitant]
     Dosage: 5 MG
  3. CALTRATE [Concomitant]
  4. PRADAXA [Suspect]
     Indication: ATRIAL FIBRILLATION
  5. HYDROCHLOROTHIAZIDE [Concomitant]
     Dosage: 12.5 MG
  6. PRADAXA [Suspect]
     Indication: TRANSIENT ISCHAEMIC ATTACK
     Dosage: 300 MG
     Dates: start: 20110324, end: 20110326
  7. SIMVASTATIN [Concomitant]

REACTIONS (1)
  - GASTROINTESTINAL HAEMORRHAGE [None]
